FAERS Safety Report 9189779 (Version 1)
Quarter: 2013Q1

REPORT INFORMATION
  Report Type: Spontaneous
  Country: ES (occurrence: ES)
  Receive Date: 20130326
  Receipt Date: 20130326
  Transmission Date: 20140127
  Serious: Yes (Other)
  Sender: FDA-Public Use
  Company Number: ES-PFIZER INC-2013097140

PATIENT
  Age: 41 Year
  Sex: Male

DRUGS (1)
  1. CHAMPIX [Suspect]
     Indication: SMOKING CESSATION THERAPY
     Dosage: 1 MG, 1X/DAY
     Route: 048
     Dates: start: 20120809, end: 20120813

REACTIONS (3)
  - Depressed mood [Recovered/Resolved]
  - Anxiety [Recovered/Resolved]
  - Agoraphobia [Recovered/Resolved]
